FAERS Safety Report 10336436 (Version 2)
Quarter: 2014Q3

REPORT INFORMATION
  Report Type: Spontaneous
  Country: US (occurrence: US)
  Receive Date: 20140723
  Receipt Date: 20140812
  Transmission Date: 20150326
  Serious: Yes (Other)
  Sender: FDA-Public Use
  Company Number: US-PERRIGO-14US007165

PATIENT
  Age: 28 Year
  Sex: Female
  Weight: 102.49 kg

DRUGS (4)
  1. NIGHTTIME [Suspect]
     Active Substance: ACETAMINOPHEN\DEXTROMETHORPHAN HYDROBROMIDE\DOXYLAMINE SUCCINATE
     Indication: NASOPHARYNGITIS
     Dosage: 2 SOFTGELS, SINGLE AT 2300
     Route: 048
     Dates: start: 20140704, end: 20140704
  2. ETHANOL [Suspect]
     Active Substance: ALCOHOL
     Indication: PRODUCT USED FOR UNKNOWN INDICATION
     Dosage: UNK
     Route: 048
     Dates: start: 20140704, end: 20140704
  3. DAYTIME PE [Suspect]
     Active Substance: ACETAMINOPHEN\DEXTROMETHORPHAN HYDROBROMIDE\PHENYLEPHRINE HYDROCHLORIDE
     Indication: NASOPHARYNGITIS
     Dosage: 2 SOFTGELS, SINGLE AT 1700
     Route: 048
     Dates: start: 20140704, end: 20140704
  4. NIGHTTIME [Suspect]
     Active Substance: ACETAMINOPHEN\DEXTROMETHORPHAN HYDROBROMIDE\DOXYLAMINE SUCCINATE
     Dosage: 2 SOFTGELS, SINGLE AT 0700
     Route: 048
     Dates: start: 20140705, end: 20140705

REACTIONS (15)
  - Vomiting [Recovered/Resolved]
  - Insomnia [Recovered/Resolved]
  - Disturbance in attention [Recovered/Resolved]
  - Palpitations [Recovered/Resolved]
  - Pulse absent [Recovered/Resolved]
  - Poisoning [Recovered/Resolved]
  - Hypotension [Recovered/Resolved]
  - Paralysis [Recovered/Resolved]
  - Dizziness [Recovered/Resolved]
  - Cognitive disorder [Recovered/Resolved]
  - Sensory loss [Recovered/Resolved]
  - Abasia [Recovered/Resolved]
  - Alcohol interaction [Recovered/Resolved]
  - Eye movement disorder [Recovered/Resolved]
  - Amnesia [Recovered/Resolved]

NARRATIVE: CASE EVENT DATE: 20140704
